FAERS Safety Report 14116082 (Version 2)
Quarter: 2018Q1

REPORT INFORMATION
  Report Type: Report from Study
  Country: US (occurrence: US)
  Receive Date: 20171023
  Receipt Date: 20180129
  Transmission Date: 20180508
  Serious: Yes (Hospitalization)
  Sender: FDA-Public Use
  Company Number: US-ACTELION-A-NJ2017-157340

PATIENT
  Age: 63 Year
  Sex: Female

DRUGS (2)
  1. VENTAVIS [Suspect]
     Active Substance: ILOPROST
     Indication: PULMONARY ARTERIAL HYPERTENSION
     Dosage: 5 MCG, 6 TO 9 TIMES DAILY
     Route: 055
     Dates: end: 201712
  2. VENTAVIS [Suspect]
     Active Substance: ILOPROST
     Dosage: 2.5 MCG, 6 TO 9 TIMES DAILY
     Route: 055

REACTIONS (10)
  - Headache [Unknown]
  - Throat irritation [Unknown]
  - Oropharyngeal pain [Unknown]
  - Flushing [Unknown]
  - Dyspnoea [Not Recovered/Not Resolved]
  - Asthma [Unknown]
  - Abdominal discomfort [Unknown]
  - Cough [Unknown]
  - Nausea [Unknown]
  - Bronchitis [Unknown]
